FAERS Safety Report 9008077 (Version 2)
Quarter: 2013Q1

REPORT INFORMATION
  Report Type: Report from Study
  Country: JP (occurrence: JP)
  Receive Date: 20130111
  Receipt Date: 20130125
  Transmission Date: 20140127
  Serious: Yes (Other)
  Sender: FDA-Public Use
  Company Number: JP-ACCORD-015967

PATIENT
  Age: 44 Year
  Sex: Female

DRUGS (7)
  1. CARBOPLATIN [Suspect]
     Indication: CERVIX CARCINOMA STAGE I
  2. CISPLATIN [Suspect]
     Indication: CERVIX CARCINOMA STAGE I
     Dosage: RECEIVED ONE CYCLE
     Route: 042
  3. CYCLOPHOSPHAMIDE [Suspect]
     Indication: CERVIX CARCINOMA STAGE I
     Dosage: RECEIVED ONE CYCLE
     Route: 042
  4. ADRIAMYCIN [Suspect]
     Indication: CERVIX CARCINOMA STAGE I
     Dosage: RECEIVED ONE CYCLE
     Route: 042
  5. PACLITAXEL [Suspect]
     Indication: CERVIX CARCINOMA STAGE I
  6. VINCRISTINE [Suspect]
     Indication: CERVIX CARCINOMA STAGE I
     Dosage: RECEIVED ONE CYCLE
     Route: 042
  7. ETOPOSIDE [Suspect]
     Indication: CERVIX CARCINOMA STAGE I
     Dosage: RECEIVED ONE CYCLE; INDICATION: PURE SMALL CELL CARCINOMA OF THE UTERINE CERVIX STAGE IB2, T1B2N1M0
     Route: 042

REACTIONS (9)
  - Fatigue [Unknown]
  - Neutropenia [Unknown]
  - Anaemia [Unknown]
  - Thrombocytopenia [Unknown]
  - Diarrhoea [Unknown]
  - Nausea [Unknown]
  - Renal failure [Unknown]
  - Off label use [Unknown]
  - Proctalgia [Unknown]
